FAERS Safety Report 9802003 (Version 1)
Quarter: 2014Q1

REPORT INFORMATION
  Report Type: Report from Study
  Country: CO (occurrence: CO)
  Receive Date: 20140107
  Receipt Date: 20140107
  Transmission Date: 20141002
  Serious: Yes (Hospitalization)
  Sender: FDA-Public Use
  Company Number: CO-ASTRAZENECA-2013SE94409

PATIENT
  Age: 74 Year
  Sex: Male

DRUGS (8)
  1. BRILINTA [Suspect]
     Indication: ACUTE CORONARY SYNDROME
     Route: 048
  2. COLCHICINE [Concomitant]
     Route: 048
  3. CLONIDINE [Concomitant]
     Route: 048
  4. LOSARTAN [Concomitant]
     Route: 048
  5. PREDNISOLONE [Concomitant]
     Dosage: DAILY
     Route: 048
  6. ASA [Concomitant]
     Route: 048
  7. AMLODIPINE [Concomitant]
     Route: 048
  8. ATORVASTATIN [Concomitant]
     Route: 048

REACTIONS (2)
  - Acute myocardial infarction [Not Recovered/Not Resolved]
  - Abdominal pain [Not Recovered/Not Resolved]
